FAERS Safety Report 7046265-1 (Version None)
Quarter: 2010Q4

REPORT INFORMATION
  Report Type: 
  Country: None (occurrence: None)
  Receive Date: 20101014
  Receipt Date: 20101007
  Transmission Date: 20110411
  Serious: Yes (Hospitalization)
  Sender: FDA-Public Use
  Company Number: A0886502A

PATIENT
  Age: 23 Year
  Sex: Male
  Weight: 70 kg

DRUGS (1)
  1. MYLERAN [Suspect]
     Indication: PROPHYLAXIS AGAINST TRANSPLANT REJECTION
     Dosage: 1MGK FOUR TIMES PER DAY
     Route: 048
     Dates: start: 20100701, end: 20100701

REACTIONS (6)
  - DRUG ADMINISTRATION ERROR [None]
  - MOUTH HAEMORRHAGE [None]
  - MUCOSAL INFLAMMATION [None]
  - OEDEMA MOUTH [None]
  - THERAPEUTIC RESPONSE UNEXPECTED [None]
  - WOUND [None]
